APPROVED DRUG PRODUCT: BANAN
Active Ingredient: CEFPODOXIME PROXETIL
Strength: EQ 100MG BASE/5ML
Dosage Form/Route: FOR SUSPENSION;ORAL
Application: N050688 | Product #001
Applicant: SANKYO USA CORP
Approved: Aug 7, 1992 | RLD: No | RS: No | Type: DISCN